FAERS Safety Report 14853557 (Version 4)
Quarter: 2018Q4

REPORT INFORMATION
  Report Type: Report from Study
  Country: IL (occurrence: IL)
  Receive Date: 20180507
  Receipt Date: 20181203
  Transmission Date: 20190204
  Serious: Yes (Hospitalization)
  Sender: FDA-Public Use
  Company Number: PHHO2017IL006576

PATIENT
  Age: 36 Year
  Sex: Male
  Weight: 84.6 kg

DRUGS (33)
  1. BLINDED DABRAFENIB [Suspect]
     Active Substance: DABRAFENIB
     Indication: METASTATIC MALIGNANT MELANOMA
     Dosage: CODE NOT BROKEN
     Route: 042
     Dates: start: 20170222, end: 20170222
  2. BLINDED NO TREATMENT RECEIVED [Suspect]
     Active Substance: INVESTIGATIONAL PRODUCT
     Indication: METASTATIC MALIGNANT MELANOMA
     Dosage: CODE NOT BROKEN
     Route: 042
     Dates: start: 20170222, end: 20170222
  3. BLINDED MK-3475 [Suspect]
     Active Substance: LAMBROLIZUMAB
     Dosage: CODE NOT BROKEN
     Route: 042
     Dates: start: 20170329, end: 20170329
  4. BLINDED PLACEBO [Suspect]
     Active Substance: INVESTIGATIONAL PRODUCT
     Dosage: CODE NOT BROKEN
     Route: 042
     Dates: start: 20170329, end: 20170329
  5. DABRAFENIB [Suspect]
     Active Substance: DABRAFENIB
     Dosage: 150 MG, BID
     Route: 048
     Dates: start: 20170313, end: 20170315
  6. DABRAFENIB [Suspect]
     Active Substance: DABRAFENIB
     Dosage: 75 MG, QD
     Route: 048
     Dates: start: 20170420, end: 20170420
  7. DABRAFENIB [Suspect]
     Active Substance: DABRAFENIB
     Dosage: 75 MG, BID
     Route: 048
     Dates: start: 20170421, end: 20170424
  8. TRAMETINIB [Suspect]
     Active Substance: TRAMETINIB
     Dosage: 2 MG, QD
     Route: 048
     Dates: start: 20170223, end: 20170315
  9. DABRAFENIB [Suspect]
     Active Substance: DABRAFENIB
     Dosage: 150 MG, BID
     Route: 048
     Dates: start: 20170223, end: 20170311
  10. DABRAFENIB [Suspect]
     Active Substance: DABRAFENIB
     Dosage: 100 MG, QD
     Route: 048
     Dates: start: 20170329, end: 20170329
  11. TRAMETINIB [Suspect]
     Active Substance: TRAMETINIB
     Indication: METASTATIC MALIGNANT MELANOMA
     Dosage: 2 MG, QD
     Route: 048
     Dates: start: 20170222, end: 20170222
  12. TRAMETINIB [Suspect]
     Active Substance: TRAMETINIB
     Dosage: 1 MG, QD
     Route: 048
     Dates: start: 20170427, end: 20170515
  13. ACAMOL [Concomitant]
     Active Substance: ACETAMINOPHEN
     Indication: PAIN
  14. OPTALGIN [Concomitant]
     Active Substance: METAMIZOLE
     Indication: PYREXIA
     Dosage: UNK
     Route: 065
     Dates: start: 20170331
  15. NAXYN [Concomitant]
     Active Substance: NAPROXEN
     Indication: PYREXIA
     Dosage: 250 MG, UNK
     Route: 048
     Dates: start: 20170329
  16. DABRAFENIB [Suspect]
     Active Substance: DABRAFENIB
     Dosage: 75 MG, BID
     Route: 048
     Dates: start: 20170427, end: 20170514
  17. MOXIPEN [Concomitant]
     Indication: PRODUCT USED FOR UNKNOWN INDICATION
     Dosage: 500 MG, UNK
     Route: 048
     Dates: start: 20170314, end: 20170316
  18. AUGMENTIN [Concomitant]
     Active Substance: AMOXICILLIN\CLAVULANATE POTASSIUM
     Indication: PROPHYLAXIS
     Dosage: UNK
     Route: 065
  19. BLINDED MK-3475 [Suspect]
     Active Substance: LAMBROLIZUMAB
     Indication: METASTATIC MALIGNANT MELANOMA
     Dosage: CODE NOT BROKEN
     Route: 042
     Dates: start: 20170222, end: 20170222
  20. BLINDED DABRAFENIB [Suspect]
     Active Substance: DABRAFENIB
     Dosage: CODE NOT BROKEN
     Route: 042
     Dates: start: 20170329, end: 20170329
  21. BLINDED TRAMETINIB [Suspect]
     Active Substance: TRAMETINIB
     Dosage: CODE NOT BROKEN
     Route: 042
     Dates: start: 20170329, end: 20170329
  22. BLINDED PLACEBO [Suspect]
     Active Substance: INVESTIGATIONAL PRODUCT
     Indication: METASTATIC MALIGNANT MELANOMA
     Dosage: CODE NOT BROKEN
     Route: 042
     Dates: start: 20170222, end: 20170222
  23. BLINDED TRAMETINIB [Suspect]
     Active Substance: TRAMETINIB
     Indication: METASTATIC MALIGNANT MELANOMA
     Dosage: CODE NOT BROKEN
     Route: 042
     Dates: start: 20170222, end: 20170222
  24. BLINDED NO TREATMENT RECEIVED [Suspect]
     Active Substance: INVESTIGATIONAL PRODUCT
     Dosage: CODE NOT BROKEN
     Route: 042
     Dates: start: 20170329, end: 20170329
  25. TRAMETINIB [Suspect]
     Active Substance: TRAMETINIB
     Dosage: 1.5 MG, QD
     Route: 048
     Dates: start: 20170403, end: 20170403
  26. OPTALGIN [Concomitant]
     Active Substance: METAMIZOLE
     Indication: PAIN
  27. DABRAFENIB [Suspect]
     Active Substance: DABRAFENIB
     Indication: METASTATIC MALIGNANT MELANOMA
     Dosage: 150 MG, QD
     Route: 048
     Dates: start: 20170222, end: 20170222
  28. DABRAFENIB [Suspect]
     Active Substance: DABRAFENIB
     Dosage: 150 MG, QD
     Route: 048
     Dates: start: 20170312, end: 20170312
  29. DABRAFENIB [Suspect]
     Active Substance: DABRAFENIB
     Dosage: 75 MG, QD
     Route: 048
     Dates: start: 20170425, end: 20170425
  30. ACAMOL [Concomitant]
     Active Substance: ACETAMINOPHEN
     Indication: PYREXIA
     Dosage: UNK
     Route: 065
     Dates: start: 20170331
  31. DABRAFENIB [Suspect]
     Active Substance: DABRAFENIB
     Dosage: 100 MG, QD
     Route: 048
     Dates: start: 20170403, end: 20170403
  32. DABRAFENIB [Suspect]
     Active Substance: DABRAFENIB
     Dosage: 75 MG, QD
     Route: 048
     Dates: start: 20170515, end: 20170515
  33. TRAMETINIB [Suspect]
     Active Substance: TRAMETINIB
     Dosage: 1 MG, QD
     Route: 048
     Dates: start: 20170421, end: 20170425

REACTIONS (2)
  - Drug-induced liver injury [Recovered/Resolved]
  - Uveitis [Recovered/Resolved]

NARRATIVE: CASE EVENT DATE: 20170316
